FAERS Safety Report 6181994-3 (Version None)
Quarter: 2009Q2

REPORT INFORMATION
  Report Type: 
  Country: None (occurrence: None)
  Receive Date: 20090505
  Receipt Date: 20090424
  Transmission Date: 20091009
  Serious: Yes (Other)
  Sender: FDA-Public Use
  Company Number: 2009003702

PATIENT
  Age: 25 Year
  Sex: Male
  Weight: 70 kg

DRUGS (5)
  1. GABITRIL [Suspect]
     Indication: BIPOLAR DISORDER
     Dosage: 8 MG (8 MG, 1 IN 1 D), ORAL
     Route: 048
     Dates: start: 20080101, end: 20090303
  2. LEXAPRO [Concomitant]
  3. SEROQUEL [Concomitant]
  4. VYVANSE (DEXAMFETAMINE) [Concomitant]
  5. VALIUM [Concomitant]

REACTIONS (5)
  - DIZZINESS [None]
  - LOSS OF CONSCIOUSNESS [None]
  - NAUSEA [None]
  - PARTIAL SEIZURES [None]
  - VISION BLURRED [None]
